FAERS Safety Report 9098349 (Version 3)
Quarter: 2014Q1

REPORT INFORMATION
  Report Type: Report from Study
  Country: US (occurrence: US)
  Receive Date: 20130213
  Receipt Date: 20140314
  Transmission Date: 20141002
  Serious: Yes (Death, Hospitalization, Other)
  Sender: FDA-Public Use
  Company Number: US-US-EMD SERONO, INC.-7192468

PATIENT
  Age: 60 Year
  Sex: Male
  Weight: 77 kg

DRUGS (2)
  1. REBIF [Suspect]
     Indication: MULTIPLE SCLEROSIS
     Route: 058
     Dates: start: 20060927
  2. VITAMIN B12                        /00056201/ [Concomitant]
     Indication: PRODUCT USED FOR UNKNOWN INDICATION

REACTIONS (12)
  - Sepsis [Fatal]
  - Septic shock [Fatal]
  - Multiple sclerosis [Fatal]
  - Venous occlusion [Recovered/Resolved]
  - Peripheral vascular disorder [Not Recovered/Not Resolved]
  - Gangrene [Unknown]
  - Procedural complication [Unknown]
  - Laceration [Not Recovered/Not Resolved]
  - Skin ulcer [Unknown]
  - Decubitus ulcer [Unknown]
  - Muscle spasticity [Unknown]
  - Gait disturbance [Unknown]
